FAERS Safety Report 9565300 (Version 1)
Quarter: 2013Q3

REPORT INFORMATION
  Report Type: Spontaneous
  Country: US (occurrence: US)
  Receive Date: 20130930
  Receipt Date: 20130930
  Transmission Date: 20140515
  Serious: Yes (Other)
  Sender: FDA-Public Use
  Company Number: US-TEVA-434445USA

PATIENT
  Age: 39 Year
  Sex: Female

DRUGS (1)
  1. FENTORA [Suspect]

REACTIONS (1)
  - Oophorectomy [Unknown]
